FAERS Safety Report 5951964-6 (Version None)
Quarter: 2008Q4

REPORT INFORMATION
  Report Type: 
  Country: None (occurrence: None)
  Receive Date: 20081113
  Receipt Date: 20071004
  Transmission Date: 20090506
  Serious: No
  Sender: FDA-Public Use
  Company Number: A0686156A

PATIENT
  Age: 69 Year
  Sex: Male

DRUGS (6)
  1. CARVEDILOL [Suspect]
     Indication: ATRIAL FIBRILLATION
     Dosage: 25MG TWICE PER DAY
     Route: 048
  2. COUMADIN [Concomitant]
  3. LISINOPRIL [Concomitant]
  4. METFORMIN HCL [Concomitant]
  5. CRESTOR [Concomitant]
  6. ZETIA [Concomitant]

REACTIONS (3)
  - EXTRASYSTOLES [None]
  - HYPERGLYCAEMIA [None]
  - PRURITUS [None]
